FAERS Safety Report 14635339 (Version 1)
Quarter: 2018Q1

REPORT INFORMATION
  Report Type: Report from Study
  Country: US (occurrence: US)
  Receive Date: 20180314
  Receipt Date: 20180314
  Transmission Date: 20180509
  Serious: Yes (Other)
  Sender: FDA-Public Use
  Company Number: US-ASTELLAS-2018US002919

PATIENT
  Age: 83 Year
  Sex: Male

DRUGS (1)
  1. ENZALUTAMIDE [Suspect]
     Active Substance: ENZALUTAMIDE
     Indication: PROSTATE CANCER
     Route: 048
     Dates: start: 20171129

REACTIONS (8)
  - Rash [Unknown]
  - Herpes zoster [Not Recovered/Not Resolved]
  - Headache [Unknown]
  - Dysphagia [Unknown]
  - Insomnia [Unknown]
  - Asthenia [Unknown]
  - Product size issue [Unknown]
  - Hot flush [Unknown]

NARRATIVE: CASE EVENT DATE: 201801
